FAERS Safety Report 5105935-2 (Version None)
Quarter: 2006Q3

REPORT INFORMATION
  Report Type: 
  Country: None (occurrence: None)
  Receive Date: 20060912
  Receipt Date: 20060829
  Transmission Date: 20061208
  Serious: Yes (Hospitalization)
  Sender: FDA-Public Use
  Company Number: 2006BI012232

PATIENT
  Age: 44 Year
  Sex: Female
  Weight: 57.1532 kg

DRUGS (2)
  1. AVONEX [Suspect]
     Indication: MULTIPLE SCLEROSIS
     Dosage: 30 UG;QW;IM
     Route: 030
     Dates: start: 19970601, end: 20030801
  2. AVONEX [Suspect]
     Indication: MULTIPLE SCLEROSIS
     Dosage: 30 UG;QW;IM
     Route: 030
     Dates: start: 20030801

REACTIONS (9)
  - COMPUTERISED TOMOGRAM ABNORMAL [None]
  - DIZZINESS [None]
  - GASTROOESOPHAGEAL REFLUX DISEASE [None]
  - HEADACHE [None]
  - HEART RATE DECREASED [None]
  - INCONTINENCE [None]
  - MULTIPLE SCLEROSIS [None]
  - VISUAL DISTURBANCE [None]
  - VOMITING [None]
